FAERS Safety Report 9912098 (Version 4)
Quarter: 2014Q4

REPORT INFORMATION
  Report Type: Report from Study
  Country: CA (occurrence: CA)
  Receive Date: 20140219
  Receipt Date: 20141226
  Transmission Date: 20150529
  Serious: Yes (Other)
  Sender: FDA-Public Use
  Company Number: CA-BRISTOL-MYERS SQUIBB COMPANY-19028976

PATIENT
  Age: 70 Year
  Sex: Female

DRUGS (11)
  1. AMITRIPTYLINE [Concomitant]
     Active Substance: AMITRIPTYLINE
  2. GABAPENTIN. [Concomitant]
     Active Substance: GABAPENTIN
  3. FOLIC ACID. [Concomitant]
     Active Substance: FOLIC ACID
  4. VITAMIN D [Concomitant]
     Active Substance: CHOLECALCIFEROL
  5. CALTRATE [Concomitant]
     Active Substance: CALCIUM CARBONATE
  6. PLAQUENIL [Concomitant]
     Active Substance: HYDROXYCHLOROQUINE SULFATE
  7. ABATACEPT [Suspect]
     Active Substance: ABATACEPT
     Indication: RHEUMATOID ARTHRITIS
     Dosage: 1 DF= 750.  ONGOING.  LOT#3J75953  EXPIRY:JUL2016
     Route: 042
     Dates: start: 20130416
  8. OXYCODONE HYDROCHLORIDE AND ACETAMINOPHEN [Concomitant]
     Active Substance: ACETAMINOPHEN\OXYCODONE HYDROCHLORIDE
  9. PARIET [Concomitant]
     Active Substance: RABEPRAZOLE SODIUM
  10. CLONIDINE. [Concomitant]
     Active Substance: CLONIDINE
  11. HYDROMORPH CONTIN [Concomitant]
     Active Substance: HYDROMORPHONE

REACTIONS (3)
  - Carpal tunnel syndrome [Recovering/Resolving]
  - Bone disorder [Unknown]
  - Localised infection [Unknown]

NARRATIVE: CASE EVENT DATE: 201310
